FAERS Safety Report 9315323 (Version 2)
Quarter: 2013Q3

REPORT INFORMATION
  Report Type: Report from Study
  Country: US (occurrence: US)
  Receive Date: 20130529
  Receipt Date: 20130726
  Transmission Date: 20140515
  Serious: Yes (Other)
  Sender: FDA-Public Use
  Company Number: US-ROCHE-1212477

PATIENT
  Sex: Male

DRUGS (5)
  1. PEGASYS [Suspect]
     Indication: CHRONIC HEPATITIS C
     Route: 058
     Dates: start: 20130313
  2. COPEGUS [Suspect]
     Indication: CHRONIC HEPATITIS C
     Dosage: DAILY IN DIVIDED DOSES
     Route: 048
     Dates: start: 20130313
  3. COPEGUS [Suspect]
     Route: 048
     Dates: start: 201305
  4. COPEGUS [Suspect]
     Route: 048
     Dates: start: 201306
  5. TELAPREVIR [Suspect]
     Indication: CHRONIC HEPATITIS C
     Route: 065
     Dates: start: 20130313, end: 20130605

REACTIONS (5)
  - Renal mass [Unknown]
  - Pruritus [Unknown]
  - Full blood count decreased [Unknown]
  - Influenza like illness [Unknown]
  - Fatigue [Unknown]
